FAERS Safety Report 10667649 (Version 1)
Quarter: 2014Q4

REPORT INFORMATION
  Report Type: Report from Study
  Country: BE (occurrence: NL)
  Receive Date: 20141222
  Receipt Date: 20141222
  Transmission Date: 20150529
  Serious: Yes (Death, Hospitalization)
  Sender: FDA-Public Use
  Company Number: BE-SA-2014SA174285

PATIENT
  Age: 62 Year
  Sex: Male
  Weight: 113.7 kg

DRUGS (3)
  1. CABAZITAXEL [Suspect]
     Active Substance: CABAZITAXEL
     Indication: PROSTATE CANCER
     Dosage: CYCLE 1-2, 50 MG?CYCLE 3-4, 42 MG?TOTAL NO. OF CYCLES- 4
     Route: 042
     Dates: start: 20130927, end: 20131113
  2. FRAXODI [Concomitant]
     Active Substance: NADROPARIN CALCIUM
  3. ACENOCOUMAROL [Concomitant]
     Active Substance: ACENOCOUMAROL

REACTIONS (2)
  - Haematuria [Fatal]
  - Anaemia [Unknown]

NARRATIVE: CASE EVENT DATE: 20131104
